FAERS Safety Report 6339336-6 (Version None)
Quarter: 2009Q3

REPORT INFORMATION
  Report Type: 
  Country: None (occurrence: None)
  Receive Date: 20090903
  Receipt Date: 20090825
  Transmission Date: 20100115
  Serious: Yes (Hospitalization)
  Sender: FDA-Public Use
  Company Number: B0590045A

PATIENT
  Age: 74 Year
  Sex: Female

DRUGS (6)
  1. TYVERB [Suspect]
     Indication: BREAST CANCER METASTATIC
     Dosage: 1250MG PER DAY
     Route: 048
     Dates: start: 20090305, end: 20090312
  2. XELODA [Suspect]
     Indication: BREAST CANCER METASTATIC
     Dosage: 1500MG CYCLIC
     Route: 048
     Dates: start: 20090305, end: 20090312
  3. ZOMETA [Suspect]
     Indication: BREAST CANCER METASTATIC
     Dosage: 4MG MONTHLY
     Route: 042
     Dates: start: 20090305, end: 20090305
  4. NEURONTIN [Concomitant]
  5. EFFERALGAN CODEINE [Concomitant]
  6. INEXIUM [Concomitant]

REACTIONS (10)
  - DEHYDRATION [None]
  - DIARRHOEA [None]
  - HYPONATRAEMIA [None]
  - LIPASE INCREASED [None]
  - MALAISE [None]
  - ORTHOSTATIC HYPOTENSION [None]
  - PANCREATITIS [None]
  - RENAL FAILURE [None]
  - SKINFOLD MEASUREMENT [None]
  - WEIGHT DECREASED [None]
